FAERS Safety Report 11246438 (Version 1)
Quarter: 2015Q3

REPORT INFORMATION
  Report Type: Spontaneous
  Country: US (occurrence: None)
  Receive Date: 20150706
  Receipt Date: 20150706
  Transmission Date: 20151125
  Serious: Yes (Other)
  Sender: FDA-Public Use
  Company Number: None

PATIENT
  Age: 29 Year
  Sex: Male
  Weight: 95.1 kg

DRUGS (1)
  1. ARIPIPRAZOLE 2 MG TAB TEVA [Suspect]
     Active Substance: ARIPIPRAZOLE
     Indication: AUTISM
     Dosage: 2 MG 1/2 BID PO
     Route: 048
     Dates: start: 20150511

REACTIONS (5)
  - Irritability [None]
  - Mood swings [None]
  - Headache [None]
  - Aggression [None]
  - Condition aggravated [None]

NARRATIVE: CASE EVENT DATE: 20150611
